FAERS Safety Report 25436203 (Version 2)
Quarter: 2025Q2

REPORT INFORMATION
  Report Type: Report from Study
  Country: MX (occurrence: MX)
  Receive Date: 20250614
  Receipt Date: 20250623
  Transmission Date: 20250717
  Serious: Yes (Other)
  Sender: ALEXION PHARMACEUTICALS
  Company Number: MX-AstraZeneca-CH-00889598A

PATIENT
  Weight: 61 kg

DRUGS (4)
  1. OLAPARIB [Suspect]
     Active Substance: OLAPARIB
     Indication: Breast cancer metastatic
     Dosage: 3 DOSAGE FORM, Q12H
  2. OLAPARIB [Suspect]
     Active Substance: OLAPARIB
     Dosage: 3 DOSAGE FORM, Q12H
  3. ONDANSETRON [Concomitant]
     Active Substance: ONDANSETRON
     Indication: Nausea
  4. Immunocal [Concomitant]
     Indication: Fatigue
     Dosage: 1 DOSAGE FORM, EVERY MORNING

REACTIONS (8)
  - Arrhythmia [Unknown]
  - Nausea [Recovered/Resolved]
  - Dizziness [Recovered/Resolved]
  - Vomiting [Unknown]
  - Fatigue [Recovered/Resolved]
  - Asthenia [Recovered/Resolved]
  - Constipation [Unknown]
  - Off label use [Unknown]
